FAERS Safety Report 8145219-1 (Version None)
Quarter: 2012Q1

REPORT INFORMATION
  Report Type: 
  Country: None (occurrence: None)
  Receive Date: 20120214
  Receipt Date: 20120203
  Transmission Date: 20120608
  Serious: Yes (Hospitalization, Other)
  Sender: FDA-Public Use
  Company Number: 2011MA003438

PATIENT
  Sex: Female
  Weight: 73.0291 kg

DRUGS (43)
  1. FOLIC ACID [Concomitant]
  2. IPRATROPIUM BROMIDE AND ALBUTEROL SULFATE [Concomitant]
  3. POTASSIUM CHLORIDE [Concomitant]
  4. PROMETHAZINE [Concomitant]
  5. ZOLPIDEM [Concomitant]
  6. METOCLOPRAMIDE [Suspect]
     Indication: NAUSEA
     Dosage: 10 MG;QID
     Dates: start: 20060420, end: 20091101
  7. METOCLOPRAMIDE [Suspect]
     Indication: GASTROOESOPHAGEAL REFLUX DISEASE
     Dosage: 10 MG;QID
     Dates: start: 20060420, end: 20091101
  8. AMANTADINE HCL [Concomitant]
  9. CLONIDINE [Concomitant]
  10. DEMEROL [Concomitant]
  11. D.H.E. 45 [Concomitant]
  12. CLARITHROMYCIN [Concomitant]
  13. IMIPRAMINE [Concomitant]
  14. PROAIR HFA [Concomitant]
  15. ADVAIR DISKUS 100/50 [Concomitant]
  16. AMLODIPINE [Concomitant]
  17. LEVAQUIN [Concomitant]
  18. PREVACID [Concomitant]
  19. VITAMIN A [Concomitant]
  20. ESTRADIOL [Concomitant]
  21. FLUOXETINE [Concomitant]
  22. HYOSCYAMINE [Concomitant]
  23. IBUPROFEN [Concomitant]
  24. PSEUDOVENT [Concomitant]
  25. AMITRIPTYLINE HCL [Concomitant]
  26. AMOXICILLIN [Concomitant]
  27. CIPROFLOXACIN [Concomitant]
  28. CYMBALTA [Concomitant]
  29. LISINOPRIL [Concomitant]
  30. LUNESTA [Concomitant]
  31. PRAVASTATIN [Concomitant]
  32. PROPOXYPHENE HYDROCHLORIDE [Concomitant]
  33. TIZANIDINE HCL [Concomitant]
  34. TUSSIONEX [Concomitant]
  35. VICODIN [Concomitant]
  36. METRONIDAZOLE [Concomitant]
  37. SULFAMETHOXAZOLE AND TRIMETHOPRIM [Concomitant]
  38. ALBUTEROL [Concomitant]
  39. BUSPIRONE HCL [Concomitant]
  40. DIAZEPAM [Concomitant]
  41. FUROSEMIDE [Concomitant]
  42. HYDROCHLOROTHIAZIDE [Concomitant]
  43. SPIRIVA [Concomitant]

REACTIONS (16)
  - TARDIVE DYSKINESIA [None]
  - TREMOR [None]
  - EMOTIONAL DISORDER [None]
  - PULMONARY HYPERTENSION [None]
  - SKELETAL INJURY [None]
  - PAIN IN JAW [None]
  - EXTRAPYRAMIDAL DISORDER [None]
  - ALVEOLITIS ALLERGIC [None]
  - JOINT DISLOCATION [None]
  - FAMILY STRESS [None]
  - DYSKINESIA [None]
  - FALL [None]
  - MENISCUS LESION [None]
  - MOVEMENT DISORDER [None]
  - ECONOMIC PROBLEM [None]
  - LUNG CONSOLIDATION [None]
